FAERS Safety Report 25006602 (Version 3)
Quarter: 2025Q1

REPORT INFORMATION
  Report Type: Spontaneous
  Country: PT (occurrence: PT)
  Receive Date: 20250225
  Receipt Date: 20250311
  Transmission Date: 20250409
  Serious: Yes (Other)
  Sender: AUROBINDO
  Company Number: PT-MYLANLABS-2024M1021495

PATIENT
  Age: 78 Year
  Sex: Male

DRUGS (16)
  1. FUROSEMIDE [Suspect]
     Active Substance: FUROSEMIDE
     Indication: Essential hypertension
     Dosage: 60 MILLIGRAM, ONCE A DAY
     Route: 065
  2. FUROSEMIDE [Suspect]
     Active Substance: FUROSEMIDE
     Indication: Hypertension
     Dosage: 40 MILLIGRAM, ONCE A DAY ((FOLLOWING RENAL DENERVATION) DOSE WAS REDUCED)
     Route: 065
  3. AMLODIPINE [Suspect]
     Active Substance: AMLODIPINE BESYLATE
     Indication: Essential hypertension
     Dosage: 10 MILLIGRAM, ONCE A DAY
     Route: 065
  4. AMLODIPINE [Suspect]
     Active Substance: AMLODIPINE BESYLATE
     Indication: Hypertension
     Dosage: 5 MILLIGRAM, ONCE A DAY
     Route: 065
  5. BISOPROLOL FUMARATE [Suspect]
     Active Substance: BISOPROLOL FUMARATE
     Indication: Essential hypertension
     Dosage: 10 MILLIGRAM, ONCE A DAY
     Route: 065
  6. BISOPROLOL FUMARATE [Suspect]
     Active Substance: BISOPROLOL FUMARATE
     Indication: Hypertension
  7. VALSARTAN AND HYDROCHLOROTHIAZIDE [Suspect]
     Active Substance: HYDROCHLOROTHIAZIDE\VALSARTAN
     Indication: Essential hypertension
     Dosage: 1 DOSAGE FORM, ONCE A DAY (360/50MG)
     Route: 065
  8. VALSARTAN AND HYDROCHLOROTHIAZIDE [Suspect]
     Active Substance: HYDROCHLOROTHIAZIDE\VALSARTAN
     Indication: Hypertension
     Dosage: 1 DOSAGE FORM, ONCE A DAY (160/25MG)
     Route: 065
  9. NIFEDIPINE [Suspect]
     Active Substance: NIFEDIPINE
     Indication: Essential hypertension
     Dosage: 60 MILLIGRAM, ONCE A DAY
     Route: 065
  10. SPIRONOLACTONE [Suspect]
     Active Substance: SPIRONOLACTONE
     Indication: Essential hypertension
     Dosage: 25 MILLIGRAM, ONCE A DAY
     Route: 065
  11. SPIRONOLACTONE [Suspect]
     Active Substance: SPIRONOLACTONE
     Indication: Hypertension
     Dosage: 50 MILLIGRAM, ONCE A DAY
     Route: 065
  12. CARVEDILOL [Suspect]
     Active Substance: CARVEDILOL
     Indication: Essential hypertension
     Dosage: 12.5 MILLIGRAM, ONCE A DAY
     Route: 065
  13. CHLORTHALIDONE [Suspect]
     Active Substance: CHLORTHALIDONE
     Indication: Essential hypertension
     Dosage: 12.5 MILLIGRAM, ONCE A DAY
     Route: 065
  14. METHYLDOPA [Suspect]
     Active Substance: METHYLDOPA
     Indication: Essential hypertension
     Dosage: 750 MILLIGRAM, ONCE A DAY
     Route: 065
  15. METHYLDOPA [Suspect]
     Active Substance: METHYLDOPA
     Indication: Hypertension
  16. AZILSARTAN KAMEDOXOMIL [Suspect]
     Active Substance: AZILSARTAN KAMEDOXOMIL
     Indication: Essential hypertension
     Dosage: 40 MILLIGRAM, ONCE A DAY
     Route: 065

REACTIONS (17)
  - Hypertensive emergency [Not Recovered/Not Resolved]
  - Renal sympathetic nerve ablation [Unknown]
  - Chronic kidney disease [Unknown]
  - Heart failure with preserved ejection fraction [Unknown]
  - Atrial fibrillation [Unknown]
  - Hypertension [Recovering/Resolving]
  - Headache [Unknown]
  - Sigmoid-shaped ventricular septum [Unknown]
  - Cardiac hypertrophy [Unknown]
  - Aortic dilatation [Unknown]
  - Blood creatinine increased [Unknown]
  - Left ventricular hypertrophy [Unknown]
  - QRS axis abnormal [Unknown]
  - Diastolic dysfunction [Unknown]
  - Multiple-drug resistance [Recovering/Resolving]
  - Drug resistance [Unknown]
  - Drug ineffective [Unknown]
